FAERS Safety Report 6034375-7 (Version None)
Quarter: 2009Q1

REPORT INFORMATION
  Report Type: 
  Country: None (occurrence: None)
  Receive Date: 20090112
  Receipt Date: 20090105
  Transmission Date: 20090719
  Serious: Yes (Other)
  Sender: FDA-Public Use
  Company Number: US-ASTRAZENECA-2009UW00341

PATIENT
  Age: 73 Year
  Sex: Female
  Weight: 72.6 kg

DRUGS (4)
  1. CRESTOR [Suspect]
     Route: 048
     Dates: start: 20081101
  2. PROPRANOLOL [Concomitant]
  3. THYROID MEDICATION [Concomitant]
  4. ARIMIDEX [Concomitant]

REACTIONS (4)
  - ARTHRITIS [None]
  - GAIT DISTURBANCE [None]
  - MENISCUS LESION [None]
  - PAIN IN EXTREMITY [None]
